FAERS Safety Report 20677414 (Version 8)
Quarter: 2022Q3

REPORT INFORMATION
  Report Type: Spontaneous
  Country: US (occurrence: US)
  Receive Date: 20220406
  Receipt Date: 20220718
  Transmission Date: 20221026
  Serious: No
  Sender: FDA-Public Use
  Company Number: US-DSJP-DSU-2022-112035AA

PATIENT
  Sex: Female

DRUGS (2)
  1. TURALIO [Suspect]
     Active Substance: PEXIDARTINIB HYDROCHLORIDE
     Indication: Giant cell tumour of tendon sheath
     Dosage: 400 MG, BID
     Route: 048
     Dates: start: 20220324
  2. TURALIO [Suspect]
     Active Substance: PEXIDARTINIB HYDROCHLORIDE
     Dosage: 200 MG

REACTIONS (14)
  - Thrombosis [Recovered/Resolved]
  - Joint warmth [Recovered/Resolved]
  - Vasodilatation [Recovered/Resolved]
  - Weight decreased [Recovered/Resolved]
  - Platelet count increased [Recovered/Resolved]
  - Decreased appetite [Recovered/Resolved]
  - Skin discolouration [Recovered/Resolved]
  - Diarrhoea [Not Recovered/Not Resolved]
  - Erythema [Recovered/Resolved]
  - Toothache [Recovered/Resolved]
  - Inflammatory marker increased [Recovered/Resolved]
  - Vitamin B6 decreased [Recovered/Resolved]
  - Product dose omission issue [Recovered/Resolved]
  - Treatment noncompliance [Unknown]

NARRATIVE: CASE EVENT DATE: 20220101
